FAERS Safety Report 5005565-7 (Version None)
Quarter: 2006Q2

REPORT INFORMATION
  Report Type: 
  Country: None (occurrence: None)
  Receive Date: 20060518
  Receipt Date: 20060511
  Transmission Date: 20061013
  Serious: Yes (Other)
  Sender: FDA-Public Use
  Company Number: PHEH2006US06260

PATIENT
  Age: 38 Year
  Sex: Female

DRUGS (3)
  1. TRILEPTAL [Suspect]
     Indication: EPILEPSY
     Dosage: 600 UNK, UNK
     Dates: start: 20050604
  2. TRILEPTAL [Suspect]
     Dosage: 1200 UNK, UNK
     Dates: end: 20060301
  3. TRILEPTAL [Suspect]
     Dosage: 1500 UNK, UNK
     Dates: start: 20060301

REACTIONS (3)
  - BREECH DELIVERY [None]
  - CAESAREAN SECTION [None]
  - DRUG EXPOSURE DURING PREGNANCY [None]
